FAERS Safety Report 7547070-X (Version None)
Quarter: 2011Q2

REPORT INFORMATION
  Report Type: 
  Country: None (occurrence: None)
  Receive Date: 20110607
  Receipt Date: 20110527
  Transmission Date: 20111010
  Serious: Yes (Hospitalization, Other)
  Sender: FDA-Public Use
  Company Number: 2011SP024691

PATIENT
  Age: 69 Year
  Sex: Female
  Weight: 86 kg

DRUGS (6)
  1. DEXAMETHASONE [Suspect]
     Indication: MULTIPLE MYELOMA
     Dosage: 20 MG; PO, 20 MG; PO, 20 MG; PO
     Route: 048
     Dates: end: 20110329
  2. DEXAMETHASONE [Suspect]
     Indication: MULTIPLE MYELOMA
     Dosage: 20 MG; PO, 20 MG; PO, 20 MG; PO
     Route: 048
     Dates: start: 20101026, end: 20101220
  3. DEXAMETHASONE [Suspect]
     Indication: MULTIPLE MYELOMA
     Dosage: 20 MG; PO, 20 MG; PO, 20 MG; PO
     Route: 048
     Dates: start: 20110222, end: 20110304
  4. VELCADE [Suspect]
     Indication: MULTIPLE MYELOMA
     Dosage: IV; IV
     Route: 042
     Dates: start: 20110222, end: 20110304
  5. VELCADE [Suspect]
     Indication: MULTIPLE MYELOMA
     Dosage: IV; IV
     Route: 042
     Dates: start: 20101026
  6. OMEPRAZOLE [Concomitant]

REACTIONS (12)
  - PERIPHERAL SENSORIMOTOR NEUROPATHY [None]
  - ABDOMINAL DISTENSION [None]
  - DIARRHOEA [None]
  - ABDOMINAL PAIN [None]
  - CULTURE STOOL POSITIVE [None]
  - PNEUMONIA [None]
  - ENTEROCOCCUS TEST POSITIVE [None]
  - HYPOALBUMINAEMIA [None]
  - OEDEMA PERIPHERAL [None]
  - ARTHRALGIA [None]
  - CONSTIPATION [None]
  - LUNG DISORDER [None]
